FAERS Safety Report 4747806-7 (Version None)
Quarter: 2005Q3

REPORT INFORMATION
  Report Type: 
  Country: None (occurrence: None)
  Receive Date: 20050816
  Receipt Date: 20050801
  Transmission Date: 20060218
  Serious: Yes (Hospitalization)
  Sender: FDA-Public Use
  Company Number: 2003140173FR

PATIENT
  Age: 84 Year
  Sex: Male

DRUGS (8)
  1. SOLU-MEDROL [Suspect]
     Indication: ILL-DEFINED DISORDER
     Dosage: 120 MG (120 MG, 1 IN 1 D), INTRAVENOUS
     Route: 042
     Dates: start: 20021008, end: 20021022
  2. OMEPRAZOLE [Suspect]
     Indication: ILL-DEFINED DISORDER
     Dosage: 1 DF (1 IN 1 D), ORAL
     Route: 048
     Dates: start: 20021008, end: 20021024
  3. TAREG (VALSARTAN) [Suspect]
     Indication: ILL-DEFINED DISORDER
     Dosage: 1 DF (1 IN 1 D), ORAL
     Route: 048
     Dates: start: 20021008, end: 20021024
  4. PREVISCAN (FLUINDIONE) [Concomitant]
  5. DIGOXIN [Concomitant]
  6. OXAZEPAM [Concomitant]
  7. ALLOPURINOL [Concomitant]
  8. SEROPRAM (CITALOPRAM HYDROBROMIDE) [Concomitant]

REACTIONS (3)
  - ANGIONEUROTIC OEDEMA [None]
  - BLOOD CHLORIDE DECREASED [None]
  - BLOOD SODIUM DECREASED [None]
